FAERS Safety Report 9266767 (Version 1)
Quarter: 2013Q2

REPORT INFORMATION
  Report Type: Spontaneous
  Country: US (occurrence: US)
  Receive Date: 20130502
  Receipt Date: 20130502
  Transmission Date: 20140414
  Serious: Yes (Other)
  Sender: FDA-Public Use
  Company Number: US-PFIZER INC-2013136379

PATIENT
  Age: 36 Year
  Sex: Female
  Weight: 52.15 kg

DRUGS (4)
  1. LYRICA [Suspect]
     Indication: FIBROMYALGIA
     Dosage: 1 DF, 2X/DAY
     Route: 048
     Dates: start: 20130426, end: 20130428
  2. LEVOTHYROXINE [Concomitant]
     Indication: HYPOTHYROIDISM
     Dosage: UNK
  3. LEXAPRO [Concomitant]
     Indication: ANXIETY
     Dosage: UNK
  4. LEXAPRO [Concomitant]
     Indication: DEPRESSION

REACTIONS (10)
  - Dyspnoea [Unknown]
  - Swelling face [Unknown]
  - Swollen tongue [Unknown]
  - Local swelling [Unknown]
  - Gingival swelling [Unknown]
  - Dysphagia [Unknown]
  - Rash [Unknown]
  - Speech disorder [Unknown]
  - Rash macular [Unknown]
  - Pharyngeal oedema [Unknown]
